FAERS Safety Report 13885340 (Version 1)
Quarter: 2017Q3

REPORT INFORMATION
  Report Type: Report from Study
  Country: None (occurrence: BR)
  Receive Date: 20170821
  Receipt Date: 20170821
  Transmission Date: 20171127
  Serious: Yes (Other)
  Sender: FDA-Public Use
  Company Number: BR-ABBVIE-17K-020-2073861-00

PATIENT
  Age: 37 Year
  Sex: Female
  Weight: 91 kg

DRUGS (2)
  1. HUMIRA [Suspect]
     Active Substance: ADALIMUMAB
     Indication: RHEUMATOID ARTHRITIS
     Route: 058
     Dates: start: 20170321, end: 20170801
  2. QUEIMALIVE [Suspect]
     Active Substance: SULFACETAMIDE SODIUM\TROLAMINE
     Indication: CHEMICAL BURN OF SKIN
     Route: 065

REACTIONS (12)
  - Visual impairment [Recovering/Resolving]
  - Hypertrichosis [Not Recovered/Not Resolved]
  - Menometrorrhagia [Not Recovered/Not Resolved]
  - Pruritus allergic [Recovering/Resolving]
  - Chemical burn of skin [Recovering/Resolving]
  - Pain [Unknown]
  - Drug hypersensitivity [Recovering/Resolving]
  - Dermatitis allergic [Recovering/Resolving]
  - Weight increased [Not Recovered/Not Resolved]
  - Burn infection [Recovering/Resolving]
  - Hormone level abnormal [Unknown]
  - Allergic oedema [Recovering/Resolving]

NARRATIVE: CASE EVENT DATE: 2017
